FAERS Safety Report 23707861 (Version 1)
Quarter: 2024Q2

REPORT INFORMATION
  Report Type: Spontaneous
  Country: OM (occurrence: OM)
  Receive Date: 20240404
  Receipt Date: 20240404
  Transmission Date: 20240716
  Serious: Yes (Other)
  Sender: FDA-Public Use
  Company Number: OM-SANDOZ-SDZ2024OM033321

PATIENT
  Age: 32 Year
  Sex: Male

DRUGS (2)
  1. BRIMONIDINE [Suspect]
     Active Substance: BRIMONIDINE TARTRATE
     Indication: Open angle glaucoma
     Dosage: UNK
     Route: 047
     Dates: start: 202001
  2. BRINZOLAMIDE [Concomitant]
     Active Substance: BRINZOLAMIDE
     Indication: Open angle glaucoma
     Dosage: UNK
     Route: 047
     Dates: start: 202001

REACTIONS (2)
  - Allergic keratitis [Recovered/Resolved]
  - Drug hypersensitivity [Unknown]
